FAERS Safety Report 18240068 (Version 1)
Quarter: 2020Q3

REPORT INFORMATION
  Report Type: Spontaneous
  Country: DE (occurrence: DE)
  Receive Date: 20200908
  Receipt Date: 20200908
  Transmission Date: 20201103
  Serious: Yes (Hospitalization, Other)
  Sender: FDA-Public Use
  Company Number: DE-AUROBINDO-AUR-APL-2009-00348

PATIENT
  Age: 62 Year
  Sex: Female
  Weight: 73 kg

DRUGS (3)
  1. MIRTAZAPINE. [Suspect]
     Active Substance: MIRTAZAPINE
     Indication: SLEEP DISORDER
     Dosage: 15 MILLIGRAM,IN THE EVENING
     Route: 065
  2. LAMOTRIGINE. [Suspect]
     Active Substance: LAMOTRIGINE
     Indication: PRODUCT USED FOR UNKNOWN INDICATION
     Dosage: 25 MILLIGRAM, ONCE A DAY
     Route: 065
  3. SERTRALINE [Suspect]
     Active Substance: SERTRALINE HYDROCHLORIDE
     Indication: DEPRESSION
     Dosage: 100 MILLIGRAM, ONCE A DAY
     Route: 065

REACTIONS (9)
  - Blister [Recovered/Resolved]
  - Pyrexia [Recovered/Resolved]
  - Rash erythematous [Recovered/Resolved]
  - Influenza like illness [Recovered/Resolved]
  - Rash [Recovered/Resolved]
  - Stomatitis [Recovered/Resolved]
  - Stevens-Johnson syndrome [Recovered/Resolved]
  - Chills [Recovered/Resolved]
  - Oropharyngeal pain [Recovered/Resolved]
